FAERS Safety Report 7326077-1 (Version None)
Quarter: 2011Q1

REPORT INFORMATION
  Report Type: 
  Country: None (occurrence: None)
  Receive Date: 20110302
  Receipt Date: 20110221
  Transmission Date: 20110831
  Serious: Yes (Hospitalization, Other)
  Sender: FDA-Public Use
  Company Number: US-ROCHE-717513

PATIENT
  Sex: Female
  Weight: 59 kg

DRUGS (9)
  1. ACCUTANE [Suspect]
     Indication: ACNE
     Route: 048
     Dates: start: 19991024, end: 20000501
  2. CLARAVIS [Suspect]
     Indication: ACNE
     Route: 048
     Dates: start: 20040101
  3. SOTRET [Suspect]
     Route: 048
     Dates: start: 20090101
  4. ACCUTANE [Suspect]
     Route: 048
     Dates: start: 20040318, end: 20040401
  5. SOTRET [Suspect]
     Indication: ACNE
     Route: 048
     Dates: start: 20050101
  6. SOTRET [Suspect]
     Route: 048
     Dates: start: 20080101
  7. CLARAVIS [Suspect]
     Route: 048
     Dates: start: 20080101
  8. ACCUTANE [Suspect]
     Dosage: THERAPY FOR TEN DAYS.
     Route: 048
     Dates: start: 20081117, end: 20081127
  9. CLARAVIS [Suspect]
     Route: 048
     Dates: start: 20090101

REACTIONS (8)
  - CROHN'S DISEASE [None]
  - DRY EYE [None]
  - ANAL FISSURE [None]
  - DEPRESSION [None]
  - IRON DEFICIENCY ANAEMIA [None]
  - ORAL HERPES [None]
  - COLITIS [None]
  - INFLAMMATORY BOWEL DISEASE [None]
